FAERS Safety Report 9251171 (Version 3)
Quarter: 2013Q3

REPORT INFORMATION
  Report Type: Spontaneous
  Country: US (occurrence: US)
  Receive Date: 20130424
  Receipt Date: 20130927
  Transmission Date: 20140515
  Serious: Yes (Death, Hospitalization, Disabling, Other)
  Sender: FDA-Public Use
  Company Number: US-ASTRAZENECA-2013SE27456

PATIENT
  Age: 65 Year
  Sex: Female
  Weight: 62.6 kg

DRUGS (19)
  1. NEXIUM [Suspect]
     Indication: GASTROOESOPHAGEAL REFLUX DISEASE
     Route: 048
     Dates: start: 2008, end: 2011
  2. NEXIUM [Suspect]
     Indication: GASTROOESOPHAGEAL REFLUX DISEASE
     Route: 048
     Dates: start: 20080811
  3. NEXIUM [Suspect]
     Indication: GASTROOESOPHAGEAL REFLUX DISEASE
     Route: 048
     Dates: start: 20110125
  4. ZANTAC [Concomitant]
  5. TAGAMET [Concomitant]
  6. OMEPRAZOLE [Concomitant]
     Dates: start: 20110125
  7. PREDNISONE [Concomitant]
     Dates: start: 20110125
  8. THEO-DUR [Concomitant]
     Dates: start: 20110125
  9. XANAX [Concomitant]
     Indication: ANXIETY
     Dates: start: 20110125
  10. ATENOLOL [Concomitant]
     Dates: start: 20080811
  11. ATENOLOL [Concomitant]
     Dates: start: 20110125
  12. PRAVACHOL [Concomitant]
     Indication: HYPERLIPIDAEMIA
     Dates: start: 20080811
  13. PRAVACHOL [Concomitant]
     Indication: HYPERLIPIDAEMIA
     Dates: start: 20110125
  14. SPIRONOLACTONE -HCTZ [Concomitant]
     Dosage: 25-25 MG 1 DF TWICE DAILY
     Dates: start: 20110125
  15. LASIX [Concomitant]
     Dates: start: 20120425
  16. PROTONIX [Concomitant]
     Dates: start: 20120425
  17. DIURETICS [Concomitant]
     Indication: OEDEMA PERIPHERAL
     Dates: start: 20120425
  18. PRILOSEC OTC [Concomitant]
     Dates: start: 20080811
  19. VALIUM [Concomitant]
     Dates: start: 20080811

REACTIONS (18)
  - Death [Fatal]
  - Nerve injury [Unknown]
  - Gait disturbance [Unknown]
  - Escherichia infection [Unknown]
  - Spinal compression fracture [Unknown]
  - Pancreatitis [Unknown]
  - Hip fracture [Unknown]
  - Spinal fracture [Unknown]
  - Osteoporosis [Unknown]
  - Neuropathy peripheral [Unknown]
  - Bone disorder [Unknown]
  - Multiple fractures [Unknown]
  - Fracture [Unknown]
  - Pulmonary fibrosis [Unknown]
  - Diabetes mellitus [Unknown]
  - Foot fracture [Unknown]
  - Dysstasia [Unknown]
  - Road traffic accident [Unknown]
